FAERS Safety Report 4809524-6 (Version None)
Quarter: 2005Q4

REPORT INFORMATION
  Report Type: 
  Country: None (occurrence: None)
  Receive Date: 20051025
  Receipt Date: 20051011
  Transmission Date: 20060501
  Serious: Yes (Hospitalization)
  Sender: FDA-Public Use
  Company Number: JP-MERCK-0510USA07231

PATIENT
  Age: 54 Year
  Sex: Male

DRUGS (13)
  1. MAGNESIUM OXIDE [Concomitant]
     Route: 065
     Dates: start: 20050921, end: 20050929
  2. CYANOCOBALAMIN [Concomitant]
     Route: 065
  3. LENDORMIN [Concomitant]
     Route: 065
     Dates: start: 20050921
  4. ALOSENN [Concomitant]
     Route: 065
     Dates: end: 20050929
  5. MAGNESIUM OXIDE [Concomitant]
     Route: 065
     Dates: end: 20050921
  6. NELBON [Concomitant]
     Route: 065
     Dates: end: 20050921
  7. FLUNITRAZEPAM [Concomitant]
     Route: 065
     Dates: end: 20050921
  8. DANTRIUM [Concomitant]
     Route: 065
     Dates: start: 20050921
  9. ULCERLMIN [Concomitant]
     Route: 065
     Dates: end: 20050921
  10. OPALMON [Concomitant]
     Route: 065
     Dates: end: 20050921
  11. PEPCID RPD [Suspect]
     Indication: SPINAL CORD INJURY
     Route: 048
     Dates: end: 20050927
  12. DEPAS [Suspect]
     Indication: SPINAL CORD INJURY
     Route: 065
     Dates: end: 20050927
  13. PURSENNID [Concomitant]
     Route: 065
     Dates: start: 20050921

REACTIONS (5)
  - ALANINE AMINOTRANSFERASE INCREASED [None]
  - ASPARTATE AMINOTRANSFERASE INCREASED [None]
  - CERVICAL SPINAL STENOSIS [None]
  - HEPATIC FUNCTION ABNORMAL [None]
  - SPINAL CORD INJURY [None]
